FAERS Safety Report 6449392-2 (Version None)
Quarter: 2009Q4

REPORT INFORMATION
  Report Type: 
  Country: None (occurrence: None)
  Receive Date: 20091120
  Receipt Date: 20091110
  Transmission Date: 20100525
  Serious: Yes (Other)
  Sender: FDA-Public Use
  Company Number: KR-JNJFOC-20091008712

PATIENT
  Age: 26 Year
  Sex: Female

DRUGS (4)
  1. WOMEN'S TYLENOL MENSTRUAL RELIEF [Suspect]
     Dosage: ORAL PROVOCATION TEST
     Route: 048
  2. WOMEN'S TYLENOL MENSTRUAL RELIEF [Suspect]
     Indication: DYSMENORRHOEA
     Dosage: FOR TWO YEARS
     Route: 048
  3. TYLENOL (CAPLET) [Concomitant]
     Dosage: ORAL PROVOCATION TEST
  4. TYLENOL (CAPLET) [Concomitant]
     Indication: DYSMENORRHOEA
     Dosage: FOR TWO YEARS

REACTIONS (1)
  - DRUG ERUPTION [None]
